FAERS Safety Report 4328988-8 (Version None)
Quarter: 2004Q1

REPORT INFORMATION
  Report Type: 
  Country: None (occurrence: None)
  Receive Date: 20040329
  Receipt Date: 20040123
  Transmission Date: 20041129
  Serious: No
  Sender: FDA-Public Use
  Company Number: 04P-163-0248038-00

PATIENT
  Age: 49 Year
  Sex: Male
  Weight: 75.7507 kg

DRUGS (7)
  1. HUMIRA [Suspect]
     Indication: RHEUMATOID ARTHRITIS
     Dosage: 40 MG, 1 IN 2 WK, SUBCUTANEOUS
     Route: 058
     Dates: start: 20031201
  2. PREDNISONE [Concomitant]
  3. PREVACHOL [Concomitant]
  4. SERTRALINE HCL [Concomitant]
  5. HYDROXYCHLOROQUINE PHOSPHATE [Concomitant]
  6. LANSOPRAZOLE [Concomitant]
  7. SILDENAFIL CIRTRATE [Concomitant]

REACTIONS (2)
  - INJECTION SITE BURNING [None]
  - INJECTION SITE PRURITUS [None]
